FAERS Safety Report 17961256 (Version 1)
Quarter: 2020Q2

REPORT INFORMATION
  Report Type: Report from Study
  Country: CN (occurrence: CN)
  Receive Date: 20200630
  Receipt Date: 20200630
  Transmission Date: 20200714
  Serious: Yes (Hospitalization)
  Sender: FDA-Public Use
  Company Number: CN-ROCHE-2632142

PATIENT
  Age: 50 Year
  Sex: Male
  Weight: 79 kg

DRUGS (3)
  1. ATEZOLIZUMAB. [Suspect]
     Active Substance: ATEZOLIZUMAB
     Indication: NON-SMALL CELL LUNG CANCER
     Dosage: DATE OF LAST DOSE PRIOR TO SAE ON 29/MAY/2020.
     Route: 042
     Dates: start: 20200324, end: 20200610
  2. SODIUM VALPROATE [Concomitant]
     Active Substance: VALPROATE SODIUM
     Route: 065
     Dates: start: 202003
  3. LEVOTHYROXINE SODIUM. [Concomitant]
     Active Substance: LEVOTHYROXINE SODIUM
     Dosage: 1.5 TABLET
     Route: 065
     Dates: start: 201911

REACTIONS (1)
  - Peritonitis [Not Recovered/Not Resolved]

NARRATIVE: CASE EVENT DATE: 20200610
